FAERS Safety Report 18319112 (Version 1)
Quarter: 2020Q3

REPORT INFORMATION
  Report Type: Spontaneous
  Country: US (occurrence: US)
  Receive Date: 20200928
  Receipt Date: 20200928
  Transmission Date: 20201103
  Serious: Yes (Other)
  Sender: FDA-Public Use
  Company Number: None

PATIENT
  Age: 67 Year
  Sex: Female
  Weight: 93 kg

DRUGS (2)
  1. LISINOPRIL 40 MG [Concomitant]
     Active Substance: LISINOPRIL
     Dates: start: 20150518, end: 20200928
  2. SIMVASTATIN. [Suspect]
     Active Substance: SIMVASTATIN
     Indication: HYPERCHOLESTEROLAEMIA
     Route: 048

REACTIONS (1)
  - Memory impairment [None]

NARRATIVE: CASE EVENT DATE: 20200914
